FAERS Safety Report 24944005 (Version 2)
Quarter: 2025Q2

REPORT INFORMATION
  Report Type: Spontaneous
  Country: IT (occurrence: IT)
  Receive Date: 20250207
  Receipt Date: 20250514
  Transmission Date: 20250716
  Serious: Yes (Other)
  Sender: ZAMBON
  Company Number: IT-ZAMBON-202500255COR

PATIENT

DRUGS (4)
  1. FOSFOMYCIN TROMETHAMINE [Suspect]
     Active Substance: FOSFOMYCIN TROMETHAMINE
     Indication: Product used for unknown indication
     Route: 048
     Dates: start: 20241219
  2. RIFAXIMIN [Suspect]
     Active Substance: RIFAXIMIN
     Route: 048
     Dates: start: 20241219
  3. PHLOROGLUCINOL [Suspect]
     Active Substance: PHLOROGLUCINOL
     Route: 065
     Dates: start: 20241219
  4. NIMESULIDE [Suspect]
     Active Substance: NIMESULIDE
     Route: 065
     Dates: start: 20241218

REACTIONS (2)
  - Drug reaction with eosinophilia and systemic symptoms [Recovered/Resolved]
  - Skin exfoliation [Recovered/Resolved]

NARRATIVE: CASE EVENT DATE: 20241219
